FAERS Safety Report 8415731-6 (Version None)
Quarter: 2012Q2

REPORT INFORMATION
  Report Type: 
  Country: None (occurrence: None)
  Receive Date: 20120606
  Receipt Date: 20120525
  Transmission Date: 20120825
  Serious: Yes (Congenital Anomaly)
  Sender: FDA-Public Use
  Company Number: GB-TEVA-339781ISR

PATIENT
  Sex: Male

DRUGS (4)
  1. LAMOTRIGINE [Suspect]
     Indication: EPILEPSY
     Dosage: INDICATION: THE MOTHER WAS TAKING THE SUSPECT DRUG FOR EPILEPSY.
     Route: 064
  2. PROCHLORPERAZINE [Concomitant]
     Route: 064
  3. CLOBAZAM [Suspect]
     Indication: EPILEPSY
     Dosage: INDICATION: THE MOTHER WAS TAKING THE SUSPECT DRUG FOR EPILEPSY.
     Route: 064
  4. VALPROIC ACID [Suspect]
     Indication: EPILEPSY
     Dosage: INDICATION: THE MOTHER WAS TAKING THE SUSPECT DRUG FOR EPILEPSY.
     Route: 064

REACTIONS (6)
  - LIMB REDUCTION DEFECT [None]
  - HAND DEFORMITY [None]
  - CONGENITAL ANOMALY [None]
  - HYPOSPADIAS [None]
  - WRIST DEFORMITY [None]
  - JOINT DISLOCATION [None]
